FAERS Safety Report 4769054-7 (Version None)
Quarter: 2005Q3

REPORT INFORMATION
  Report Type: 
  Country: None (occurrence: None)
  Receive Date: 20050914
  Receipt Date: 20050907
  Transmission Date: 20060218
  Serious: Yes (Hospitalization)
  Sender: FDA-Public Use
  Company Number: 2005-US-00012

PATIENT
  Age: 55 Year
  Sex: Male
  Weight: 78.4723 kg

DRUGS (1)
  1. CLOZAPINE [Suspect]
     Dosage: 850 MG QD, ORAL
     Route: 048
     Dates: start: 20020101

REACTIONS (1)
  - OSTEOMYELITIS [None]
